FAERS Safety Report 6348978-3 (Version None)
Quarter: 2009Q3

REPORT INFORMATION
  Report Type: 
  Country: None (occurrence: None)
  Receive Date: 20090911
  Receipt Date: 20090810
  Transmission Date: 20100115
  Serious: Yes (Other)
  Sender: FDA-Public Use
  Company Number: NL-ASTRAZENECA-2009SE08245

PATIENT
  Age: 39 Year
  Sex: Male
  Weight: 90 kg

DRUGS (5)
  1. METOPROLOL TARTRATE [Suspect]
     Indication: HYPERTENSION
     Route: 048
     Dates: start: 20060511
  2. MARAVIROC CODE NOT BROKEN [Suspect]
     Indication: HIV INFECTION
     Route: 048
     Dates: start: 20090629, end: 20090707
  3. STOCRIN [Concomitant]
     Indication: HIV INFECTION
     Dates: start: 20051124
  4. EPIVIR [Concomitant]
     Indication: HIV INFECTION
     Dates: start: 20051124
  5. VIREAD [Concomitant]
     Indication: HIV INFECTION
     Dates: start: 20051124

REACTIONS (2)
  - HALLUCINATION [None]
  - PRURITUS [None]
